FAERS Safety Report 25400703 (Version 3)
Quarter: 2025Q3

REPORT INFORMATION
  Report Type: Report from Study
  Country: CN (occurrence: CN)
  Receive Date: 20250605
  Receipt Date: 20250826
  Transmission Date: 20251021
  Serious: Yes (Hospitalization)
  Sender: ROCHE
  Company Number: CN-ROCHE-10000302354

PATIENT
  Age: 44 Year
  Sex: Female
  Weight: 57 kg

DRUGS (6)
  1. POLATUZUMAB VEDOTIN [Suspect]
     Active Substance: POLATUZUMAB VEDOTIN
     Indication: Diffuse large B-cell lymphoma
     Route: 042
     Dates: start: 20241213, end: 20241213
  2. RITUXIMAB [Suspect]
     Active Substance: RITUXIMAB
     Indication: Diffuse large B-cell lymphoma
     Route: 042
     Dates: start: 20241214, end: 20241214
  3. PREDNISONE [Suspect]
     Active Substance: PREDNISONE
     Indication: Diffuse large B-cell lymphoma
     Route: 048
     Dates: start: 20241215, end: 20241215
  4. RITUXIMAB [Suspect]
     Active Substance: RITUXIMAB
     Indication: Diffuse large B-cell lymphoma
     Route: 042
     Dates: start: 20250417, end: 20250417
  5. CYCLOPHOSPHAMIDE [Suspect]
     Active Substance: CYCLOPHOSPHAMIDE
     Indication: Diffuse large B-cell lymphoma
     Route: 042
     Dates: start: 20241215, end: 20241215
  6. EPIRUBICIN [Suspect]
     Active Substance: EPIRUBICIN
     Indication: Diffuse large B-cell lymphoma
     Route: 042
     Dates: start: 20241215, end: 20241215

REACTIONS (1)
  - Intracranial mass [Not Recovered/Not Resolved]

NARRATIVE: CASE EVENT DATE: 20250520
